FAERS Safety Report 6154736-5 (Version None)
Quarter: 2009Q2

REPORT INFORMATION
  Report Type: 
  Country: None (occurrence: None)
  Receive Date: 20090414
  Receipt Date: 20090407
  Transmission Date: 20091009
  Serious: Yes (Hospitalization)
  Sender: FDA-Public Use
  Company Number: B0568912A

PATIENT
  Sex: Male

DRUGS (4)
  1. CLAMOXYL [Suspect]
     Indication: PROSTATITIS
     Dosage: 1G THREE TIMES PER DAY
     Route: 048
     Dates: start: 20081223, end: 20081224
  2. DEPAKENE [Suspect]
     Indication: CONVULSION
     Dosage: 500MG TWICE PER DAY
     Route: 048
     Dates: start: 20081221, end: 20081227
  3. URBANYL [Suspect]
     Indication: CONVULSION
     Dosage: 5MG PER DAY
     Route: 048
     Dates: start: 20081221, end: 20081226
  4. TARGOCID [Suspect]
     Indication: PROSTATITIS
     Dosage: 400MG PER DAY
     Route: 030
     Dates: start: 20081225, end: 20081227

REACTIONS (4)
  - BLISTER [None]
  - DERMATITIS EXFOLIATIVE [None]
  - ROSEOLA [None]
  - SKIN DISORDER [None]
